FAERS Safety Report 5812497-0 (Version None)
Quarter: 2008Q3

REPORT INFORMATION
  Report Type: 
  Country: None (occurrence: None)
  Receive Date: 20080711
  Receipt Date: 20080630
  Transmission Date: 20090109
  Serious: Yes (Hospitalization)
  Sender: FDA-Public Use
  Company Number: VISP-NO-0807S-0344

PATIENT
  Age: 49 Year
  Sex: Female

DRUGS (2)
  1. VISIPAQUE [Suspect]
     Indication: PAIN
     Dosage: SINGLE
     Dates: start: 20070911, end: 20070911
  2. OXAZEPAM (OXAPAX) [Concomitant]

REACTIONS (2)
  - FLANK PAIN [None]
  - HYPERSENSITIVITY [None]
